FAERS Safety Report 10543445 (Version 4)
Quarter: 2014Q4

REPORT INFORMATION
  Report Type: Spontaneous
  Country: US (occurrence: US)
  Receive Date: 20141027
  Receipt Date: 20141231
  Transmission Date: 20150529
  Serious: Yes (Other)
  Sender: FDA-Public Use
  Company Number: US-PFIZER INC-2014290691

PATIENT
  Age: 68 Year
  Sex: Female
  Weight: 73 kg

DRUGS (4)
  1. LYRICA [Suspect]
     Active Substance: PREGABALIN
     Indication: PARAESTHESIA
  2. LYRICA [Suspect]
     Active Substance: PREGABALIN
     Indication: BURNING SENSATION
  3. LYRICA [Suspect]
     Active Substance: PREGABALIN
     Indication: NEUROPATHY PERIPHERAL
     Dosage: 50 OR 75 MG GRADUALLY INCREASED TO 100 MG
     Route: 048
  4. LYRICA [Suspect]
     Active Substance: PREGABALIN
     Indication: HYPOAESTHESIA
     Dosage: 100 MG, 3X/DAY
     Route: 048

REACTIONS (5)
  - Somnolence [Recovered/Resolved]
  - Anxiety [Recovered/Resolved]
  - Drug effect incomplete [Recovered/Resolved]
  - Eye disorder [Recovered/Resolved]
  - Feeling abnormal [Recovered/Resolved]
